FAERS Safety Report 21299159 (Version 2)
Quarter: 2022Q3

REPORT INFORMATION
  Report Type: Spontaneous
  Country: JP (occurrence: JP)
  Receive Date: 20220906
  Receipt Date: 20220919
  Transmission Date: 20221026
  Serious: Yes (Hospitalization)
  Sender: FDA-Public Use
  Company Number: JP-TEVA-2022-JP-2070352

PATIENT
  Age: 60 Year
  Sex: Female

DRUGS (6)
  1. PREDNISOLONE [Suspect]
     Active Substance: PREDNISOLONE
     Indication: Cardiac sarcoidosis
     Dosage: 15 MILLIGRAM DAILY;
     Route: 065
     Dates: start: 2015
  2. METHOTREXATE [Suspect]
     Active Substance: METHOTREXATE
     Indication: Cardiac sarcoidosis
     Route: 065
     Dates: start: 2015
  3. METHOTREXATE [Suspect]
     Active Substance: METHOTREXATE
     Route: 065
  4. REMDESIVIR [Concomitant]
     Active Substance: REMDESIVIR
     Indication: COVID-19
     Dosage: 200 MILLIGRAM DAILY; RECEIVED ON THE FIRST DAY
     Route: 042
  5. REMDESIVIR [Concomitant]
     Active Substance: REMDESIVIR
     Indication: COVID-19
     Dosage: 100 MILLIGRAM DAILY; RECEIVED FOR 4 MORE DAYS
     Route: 042
  6. FUROSEMIDE [Concomitant]
     Active Substance: FUROSEMIDE
     Indication: COVID-19
     Dosage: RECEIVED ON DAY FOURTH
     Route: 065

REACTIONS (1)
  - COVID-19 pneumonia [Recovering/Resolving]
